FAERS Safety Report 10233731 (Version 1)
Quarter: 2014Q2

REPORT INFORMATION
  Report Type: Spontaneous
  Country: US (occurrence: US)
  Receive Date: 20140612
  Receipt Date: 20140612
  Transmission Date: 20141212
  Serious: Yes (Hospitalization)
  Sender: FDA-Public Use
  Company Number: US-OTSUKA-US-2014-11277

PATIENT
  Age: 20 Year
  Sex: Female

DRUGS (1)
  1. ABILIFY MAINTENA [Suspect]
     Dosage: 400 MG MILLIGRAM(S), QM
     Route: 030

REACTIONS (6)
  - Psychiatric symptom [Not Recovered/Not Resolved]
  - Agitation [Not Recovered/Not Resolved]
  - Frustration [Not Recovered/Not Resolved]
  - Aggression [Not Recovered/Not Resolved]
  - Insomnia [Not Recovered/Not Resolved]
  - Tobacco user [Not Recovered/Not Resolved]
